FAERS Safety Report 7650814-X (Version None)
Quarter: 2011Q3

REPORT INFORMATION
  Report Type: 
  Country: None (occurrence: None)
  Receive Date: 20110727
  Receipt Date: 20110715
  Transmission Date: 20111222
  Serious: Yes (Hospitalization, Other)
  Sender: FDA-Public Use
  Company Number: 2011SP029874

PATIENT
  Age: 44 Year
  Sex: Female
  Weight: 46 kg

DRUGS (2)
  1. REBETOL [Suspect]
     Indication: HEPATITIS C
     Dosage: 200 MCG;
     Dates: end: 20110603
  2. PEG-INTRON [Suspect]
     Indication: HEPATITIS C
     Dosage: 10 MCG
     Dates: end: 20110603

REACTIONS (1)
  - DISSEMINATED TUBERCULOSIS [None]
